FAERS Safety Report 20671453 (Version 1)
Quarter: 2022Q2

REPORT INFORMATION
  Report Type: Spontaneous
  Country: US (occurrence: US)
  Receive Date: 20220404
  Receipt Date: 20220404
  Transmission Date: 20220721
  Serious: Yes (Hospitalization, Other)
  Sender: FDA-Public Use
  Company Number: US-ALLERGAN-2210723US

PATIENT
  Sex: Female

DRUGS (1)
  1. VIIBRYD [Suspect]
     Active Substance: VILAZODONE HYDROCHLORIDE
     Indication: Product used for unknown indication
     Dosage: 17X40MG
     Route: 048
     Dates: start: 20220326, end: 20220326

REACTIONS (6)
  - White blood cell count decreased [Unknown]
  - Neutrophil count increased [Unknown]
  - Serotonin syndrome [Unknown]
  - Overdose [Unknown]
  - Wrong patient received product [Unknown]
  - Product use issue [Unknown]

NARRATIVE: CASE EVENT DATE: 20220326
